FAERS Safety Report 10166109 (Version 2)
Quarter: 2014Q2

REPORT INFORMATION
  Report Type: Spontaneous
  Country: US (occurrence: US)
  Receive Date: 20140512
  Receipt Date: 20140618
  Transmission Date: 20141212
  Serious: Yes (Other)
  Sender: FDA-Public Use
  Company Number: US-BEH-2014042377

PATIENT
  Sex: Female

DRUGS (4)
  1. BERINERT [Suspect]
     Indication: PROPHYLAXIS
     Dosage: START DATE PRIOR TO 29-APR-2013
     Route: 042
  2. BERINERT [Suspect]
     Indication: PROPHYLAXIS
     Dosage: START DATE PRIOR TO 29-APR-2013
     Route: 042
  3. SOLUCORTEF [Concomitant]
  4. CINRYZE [Concomitant]

REACTIONS (1)
  - Hereditary angioedema [Recovered/Resolved]
